FAERS Safety Report 19138811 (Version 1)
Quarter: 2021Q2

REPORT INFORMATION
  Report Type: Spontaneous
  Country: US (occurrence: US)
  Receive Date: 20210414
  Receipt Date: 20210414
  Transmission Date: 20210717
  Serious: Yes (Hospitalization)
  Sender: FDA-Public Use
  Company Number: None

PATIENT
  Age: 64 Year
  Sex: Male

DRUGS (1)
  1. LENVIMA [Suspect]
     Active Substance: LENVATINIB
     Indication: THYROID CANCER
     Route: 048
     Dates: start: 20201114

REACTIONS (4)
  - Coma [None]
  - Unresponsive to stimuli [None]
  - Dialysis [None]
  - Therapy interrupted [None]

NARRATIVE: CASE EVENT DATE: 20210325
